FAERS Safety Report 21940472 (Version 1)
Quarter: 2023Q1

REPORT INFORMATION
  Report Type: Report from Study
  Country: US (occurrence: US)
  Receive Date: 20230201
  Receipt Date: 20230201
  Transmission Date: 20230417
  Serious: No
  Sender: FDA-Public Use
  Company Number: US-EXELIXIS-CABO-22051042

PATIENT
  Sex: Female

DRUGS (9)
  1. CABOMETYX [Suspect]
     Active Substance: CABOZANTINIB S-MALATE
     Indication: Meningeal neoplasm
     Dosage: 40 MG, QD
  2. CABOMETYX [Suspect]
     Active Substance: CABOZANTINIB S-MALATE
     Dosage: 20 MG, QD
  3. CABOMETYX [Suspect]
     Active Substance: CABOZANTINIB S-MALATE
     Dosage: 20 MG, QD
  4. ALPRAZOLAM [Concomitant]
     Active Substance: ALPRAZOLAM
     Dosage: UNK
  5. FUROSEMIDE [Concomitant]
     Active Substance: FUROSEMIDE
     Dosage: UNK
  6. GABAPENTIN [Concomitant]
     Active Substance: GABAPENTIN
     Dosage: UNK
  7. PREDNISONE [Concomitant]
     Active Substance: PREDNISONE
     Dosage: UNK
  8. TRAMADOL [Concomitant]
     Active Substance: TRAMADOL
     Dosage: UNK
  9. LEVOTHYROXINE SODIUM [Concomitant]
     Active Substance: LEVOTHYROXINE SODIUM
     Dosage: UNK

REACTIONS (4)
  - Adverse drug reaction [Unknown]
  - Drug ineffective [Unknown]
  - Product dose omission issue [Unknown]
  - Off label use [Unknown]
